FAERS Safety Report 22662013 (Version 6)
Quarter: 2024Q2

REPORT INFORMATION
  Report Type: Spontaneous
  Country: US (occurrence: US)
  Receive Date: 20230630
  Receipt Date: 20240409
  Transmission Date: 20240716
  Serious: Yes (Disabling, Other)
  Sender: FDA-Public Use
  Company Number: US-HORIZON THERAPEUTICS-HZN-2023-004889

PATIENT

DRUGS (24)
  1. TEPEZZA [Suspect]
     Active Substance: TEPROTUMUMAB-TRBW
     Indication: Endocrine ophthalmopathy
     Dosage: 1ST INFUSION
     Route: 042
     Dates: start: 20210702
  2. TEPEZZA [Suspect]
     Active Substance: TEPROTUMUMAB-TRBW
     Indication: Graves^ disease
     Dosage: 2ND INFUSION
     Route: 042
  3. TEPEZZA [Suspect]
     Active Substance: TEPROTUMUMAB-TRBW
     Dosage: 3RD INFUSION
     Route: 042
  4. TEPEZZA [Suspect]
     Active Substance: TEPROTUMUMAB-TRBW
     Dosage: 4TH INFUSION
     Route: 042
     Dates: start: 20210921
  5. TEPEZZA [Suspect]
     Active Substance: TEPROTUMUMAB-TRBW
     Dosage: 5TH INFUSION
     Route: 042
  6. TEPEZZA [Suspect]
     Active Substance: TEPROTUMUMAB-TRBW
     Dosage: 6TH INFUSION
     Route: 042
     Dates: start: 20211102, end: 202111
  7. TIMOPTIC [Concomitant]
     Active Substance: TIMOLOL MALEATE
  8. XYZAL ALLERGY 24HR [Concomitant]
     Active Substance: LEVOCETIRIZINE DIHYDROCHLORIDE
  9. SYNTHROID [Concomitant]
     Active Substance: LEVOTHYROXINE SODIUM
     Dosage: UNK UNK, QOD
     Route: 048
  10. LYRICA [Concomitant]
     Active Substance: PREGABALIN
     Dosage: UNK UNK, TID
     Route: 048
  11. BOTULINUM TOXIN TYPE A [Concomitant]
     Active Substance: BOTULINUM TOXIN TYPE A
  12. VIGAMOX [Concomitant]
     Active Substance: MOXIFLOXACIN HYDROCHLORIDE
  13. OXYCODONE [Concomitant]
     Active Substance: OXYCODONE\OXYCODONE HYDROCHLORIDE
     Route: 048
  14. ELIQUIS [Concomitant]
     Active Substance: APIXABAN
     Dosage: UNK UNK, BID
     Route: 048
  15. FLONASE [Concomitant]
     Active Substance: FLUTICASONE PROPIONATE
     Dosage: 2 SPRAY IN EACH NOSTRIL ONE HOUR BEFORE BED NASALLY 30 DAYS
  16. FOLVITE [Concomitant]
     Active Substance: FOLIC ACID
     Dosage: UNK UNK, QD
     Route: 048
  17. PRILOSEC [Concomitant]
     Active Substance: OMEPRAZOLE MAGNESIUM
     Dosage: UNK UNK, QD
     Route: 048
  18. OXYCONTIN [Concomitant]
     Active Substance: OXYCODONE HYDROCHLORIDE
  19. PERCOCET [Concomitant]
     Active Substance: ACETAMINOPHEN\OXYCODONE HYDROCHLORIDE
     Indication: Pain
     Dosage: 5- 325 MG
     Route: 048
  20. LIFITEGRAST [Concomitant]
     Active Substance: LIFITEGRAST
  21. PRED FORTE [Concomitant]
     Active Substance: PREDNISOLONE ACETATE
  22. ATENOLOL [Concomitant]
     Active Substance: ATENOLOL
     Dosage: 25 MG, QD
     Route: 048
  23. TUMS [Concomitant]
     Active Substance: CALCIUM CARBONATE
     Dosage: 500 MG, QD
     Route: 048
  24. CARBOXYMETHYLCELLULOSE CALCIUM [Concomitant]
     Active Substance: CARBOXYMETHYLCELLULOSE CALCIUM
     Dosage: 2 DROPS INTO BOTH EYES EVERY 4 (FOUR) HOURS
     Route: 047

REACTIONS (45)
  - Physical disability [Unknown]
  - Disability [Unknown]
  - Ocular hypertension [Unknown]
  - Deafness permanent [Unknown]
  - Interstitial lung disease [Unknown]
  - Liver injury [Not Recovered/Not Resolved]
  - Anxiety [Unknown]
  - Impaired quality of life [Unknown]
  - Concomitant disease aggravated [Unknown]
  - Pain [Unknown]
  - Discomfort [Unknown]
  - Emotional distress [Unknown]
  - Injury [Unknown]
  - Auditory disorder [Unknown]
  - Cardiac output decreased [Unknown]
  - Confusional state [Unknown]
  - Disturbance in attention [Unknown]
  - Dry mouth [Unknown]
  - Memory impairment [Unknown]
  - Blepharitis [Unknown]
  - Neuralgia [Unknown]
  - Herpes simplex [Unknown]
  - Varicella zoster virus infection [Unknown]
  - Musculoskeletal disorder [Unknown]
  - Arthralgia [Unknown]
  - Ear discomfort [Unknown]
  - Thyroid disorder [Not Recovered/Not Resolved]
  - Pyrexia [Not Recovered/Not Resolved]
  - Chills [Not Recovered/Not Resolved]
  - Tremor [Not Recovered/Not Resolved]
  - Weight decreased [Not Recovered/Not Resolved]
  - Asthenia [Unknown]
  - Diarrhoea [Unknown]
  - Headache [Unknown]
  - Tinnitus [Unknown]
  - Fatigue [Unknown]
  - Nausea [Unknown]
  - Product quality issue [Unknown]
  - Economic problem [Unknown]
  - Vomiting [Not Recovered/Not Resolved]
  - Lacrimation increased [Not Recovered/Not Resolved]
  - Periorbital swelling [Not Recovered/Not Resolved]
  - Photophobia [Not Recovered/Not Resolved]
  - Ocular discomfort [Not Recovered/Not Resolved]
  - Hepatic enzyme increased [Recovering/Resolving]

NARRATIVE: CASE EVENT DATE: 20210101
